FAERS Safety Report 18432253 (Version 1)
Quarter: 2020Q4

REPORT INFORMATION
  Report Type: Spontaneous
  Country: JP (occurrence: JP)
  Receive Date: 20201027
  Receipt Date: 20201027
  Transmission Date: 20210114
  Serious: Yes (Death, Other)
  Sender: FDA-Public Use
  Company Number: JP-PFIZER INC-2020412350

PATIENT
  Age: 62 Year
  Sex: Male

DRUGS (1)
  1. TYGACIL [Suspect]
     Active Substance: TIGECYCLINE
     Indication: PNEUMONIA ASPIRATION
     Dosage: 100 MG, DAILY
     Route: 041

REACTIONS (3)
  - Neoplasm progression [Fatal]
  - Pneumonia aspiration [Fatal]
  - Disease progression [Fatal]
